FAERS Safety Report 9722018 (Version 1)
Quarter: 2013Q4

REPORT INFORMATION
  Report Type: Spontaneous
  Country: US (occurrence: US)
  Receive Date: 20131202
  Receipt Date: 20131202
  Transmission Date: 20140711
  Serious: No
  Sender: FDA-Public Use
  Company Number: US-BIOGENIDEC-2013BI078759

PATIENT
  Age: 34 Year
  Sex: Female

DRUGS (12)
  1. TECFIDERA [Suspect]
     Indication: MULTIPLE SCLEROSIS
     Route: 048
     Dates: end: 20130724
  2. TECFIDERA [Suspect]
     Indication: MULTIPLE SCLEROSIS
     Route: 048
     Dates: start: 20130724
  3. NUVIGIL [Concomitant]
  4. RABUMETONE [Concomitant]
  5. VITAMIN E [Concomitant]
  6. Q-10 ENZYME [Concomitant]
  7. CALCIUM CITRATE [Concomitant]
  8. VITAMIN D3 [Concomitant]
  9. VITAMIN B COMPLEX [Concomitant]
  10. BIOTIN [Concomitant]
  11. 5HTP [Concomitant]
  12. RATIN A MICRO [Concomitant]

REACTIONS (1)
  - Flushing [Not Recovered/Not Resolved]
